FAERS Safety Report 22038065 (Version 1)
Quarter: 2023Q1

REPORT INFORMATION
  Report Type: Spontaneous
  Country: US (occurrence: US)
  Receive Date: 20230227
  Receipt Date: 20230227
  Transmission Date: 20230417
  Serious: No
  Sender: FDA-Public Use
  Company Number: US-IGSA-BIG0017562

PATIENT
  Age: 36 Year
  Sex: Male
  Weight: 72 kg

DRUGS (4)
  1. PROLASTIN-C LIQUID [Suspect]
     Active Substance: .ALPHA.1-PROTEINASE INHIBITOR HUMAN
     Indication: Alpha-1 antitrypsin deficiency
     Dosage: UNK
     Dates: start: 20220128, end: 20220128
  2. PROAIR HFA [Concomitant]
     Active Substance: ALBUTEROL SULFATE
  3. QUETIAPINE FUMARATE [Concomitant]
     Active Substance: QUETIAPINE FUMARATE
  4. TRELEGY ELLIPTA [Concomitant]
     Active Substance: FLUTICASONE FUROATE\UMECLIDINIUM BROMIDE\VILANTEROL TRIFENATATE

REACTIONS (2)
  - Chills [Recovering/Resolving]
  - Feeling cold [Recovering/Resolving]

NARRATIVE: CASE EVENT DATE: 20220128
